FAERS Safety Report 15011048 (Version 1)
Quarter: 2018Q2

REPORT INFORMATION
  Report Type: Spontaneous
  Country: US (occurrence: US)
  Receive Date: 20180529
  Receipt Date: 20180529
  Transmission Date: 20180711
  Serious: Yes (Hospitalization)
  Sender: FDA-Public Use
  Company Number: None

PATIENT
  Age: 59 Year
  Sex: Female

DRUGS (9)
  1. IBUPROFEN. [Concomitant]
     Active Substance: IBUPROFEN
  2. CYCLOSPORINE. [Concomitant]
     Active Substance: CYCLOSPORINE
  3. METHOTREXATE. [Concomitant]
     Active Substance: METHOTREXATE
  4. FOLIC ACID. [Concomitant]
     Active Substance: FOLIC ACID
  5. VICODIN [Concomitant]
     Active Substance: ACETAMINOPHEN\HYDROCODONE BITARTRATE
  6. HUMIRA [Suspect]
     Active Substance: ADALIMUMAB
     Indication: PSORIATIC ARTHROPATHY
     Route: 058
     Dates: start: 20150513, end: 20171130
  7. RANITIDINE. [Concomitant]
     Active Substance: RANITIDINE
  8. TRAMADOL. [Concomitant]
     Active Substance: TRAMADOL
  9. ZOLOFT [Concomitant]
     Active Substance: SERTRALINE HYDROCHLORIDE

REACTIONS (2)
  - Cardiac failure congestive [None]
  - Sepsis [None]

NARRATIVE: CASE EVENT DATE: 20171206
